FAERS Safety Report 4515751-8 (Version None)
Quarter: 2004Q4

REPORT INFORMATION
  Report Type: 
  Country: None (occurrence: None)
  Receive Date: 20041201
  Receipt Date: 20041123
  Transmission Date: 20050328
  Serious: Yes (Life-Threatening, Hospitalization, Disabling)
  Sender: FDA-Public Use
  Company Number: US-MERCK-0411USA03870

PATIENT
  Age: 60 Year
  Sex: Male

DRUGS (5)
  1. VIOXX [Suspect]
     Indication: ARTHRITIS
     Route: 048
     Dates: start: 20011001, end: 20040930
  2. EFFEXOR [Concomitant]
     Route: 065
  3. FLOMAX [Concomitant]
     Route: 065
  4. ALLEGRA [Concomitant]
     Route: 065
  5. [THERAPY UNSPECIFIED] [Concomitant]
     Route: 065

REACTIONS (2)
  - CHEST WALL PAIN [None]
  - SUPRAVENTRICULAR TACHYCARDIA [None]
